FAERS Safety Report 8062950-7 (Version None)
Quarter: 2012Q1

REPORT INFORMATION
  Report Type: 
  Country: None (occurrence: None)
  Receive Date: 20120123
  Receipt Date: 20120123
  Transmission Date: 20120608
  Serious: No
  Sender: FDA-Public Use
  Company Number: None

PATIENT
  Age: 53 Year
  Sex: Male
  Weight: 79.378 kg

DRUGS (1)
  1. AVELOX [Suspect]
     Indication: SINUSITIS
     Dosage: ONE 400MG TABLET
     Route: 048
     Dates: start: 20100509, end: 20100510

REACTIONS (13)
  - FEELING ABNORMAL [None]
  - ACTIVITIES OF DAILY LIVING IMPAIRED [None]
  - FEELING COLD [None]
  - GAIT DISTURBANCE [None]
  - MUSCLE SPASMS [None]
  - PERIPHERAL COLDNESS [None]
  - ANXIETY [None]
  - DISTURBANCE IN ATTENTION [None]
  - TENDONITIS [None]
  - PALPITATIONS [None]
  - INSOMNIA [None]
  - MALAISE [None]
  - PARAESTHESIA [None]
